FAERS Safety Report 7075079-1 (Version None)
Quarter: 2010Q4

REPORT INFORMATION
  Report Type: 
  Country: None (occurrence: None)
  Receive Date: 20101029
  Receipt Date: 20100412
  Transmission Date: 20110411
  Serious: No
  Sender: FDA-Public Use
  Company Number: US-WYE-H14648410

PATIENT
  Age: 13 Year
  Sex: Female
  Weight: 47.67 kg

DRUGS (3)
  1. ALAVERT [Suspect]
     Indication: SEASONAL ALLERGY
     Route: 048
     Dates: start: 20100410
  2. ALAVERT [Suspect]
     Indication: NASAL CONGESTION
  3. ALAVERT [Suspect]
     Indication: EYE PRURITUS

REACTIONS (1)
  - DRUG INEFFECTIVE [None]
